FAERS Safety Report 17406270 (Version 1)
Quarter: 2020Q1

REPORT INFORMATION
  Report Type: Spontaneous
  Country: US (occurrence: US)
  Receive Date: 20200128
  Receipt Date: 20200128
  Transmission Date: 20200409
  Serious: No
  Sender: FDA-Public Use
  Company Number: None

PATIENT
  Age: 64 Year
  Sex: Female

DRUGS (4)
  1. IFOSFAMIDE. [Concomitant]
     Active Substance: IFOSFAMIDE
  2. VINCRISTINE [Concomitant]
     Active Substance: VINCRISTINE
  3. DOXORUBICIN [Concomitant]
     Active Substance: DOXORUBICIN
  4. ETOPOSIDE INJ 20MG/ML [Suspect]
     Active Substance: ETOPOSIDE
     Route: 042
     Dates: start: 202001

REACTIONS (1)
  - Off label use [None]

NARRATIVE: CASE EVENT DATE: 20200128
